FAERS Safety Report 9438273 (Version 1)
Quarter: 2013Q3

REPORT INFORMATION
  Report Type: Spontaneous
  Country: US (occurrence: US)
  Receive Date: 20130802
  Receipt Date: 20130802
  Transmission Date: 20140515
  Serious: No
  Sender: FDA-Public Use
  Company Number: US-BRISTOL-MYERS SQUIBB COMPANY-17109471

PATIENT
  Age: 79 Year
  Sex: Male

DRUGS (10)
  1. WARFARIN SODIUM [Suspect]
     Dosage: 1 DF: 5MG 3 TIMES A WEEK AND 2.5 MG ON OTHER FOUR DAYS
     Dates: start: 20120714
  2. OMEPRAZOLE [Concomitant]
  3. FINASTERIDE [Concomitant]
  4. TAMSULOSIN [Concomitant]
  5. NIASPAN [Concomitant]
  6. CENTRUM [Concomitant]
  7. TIKOSYN [Concomitant]
  8. TIKOSYN [Concomitant]
  9. METOPROLOL [Concomitant]
  10. WARFARIN [Concomitant]

REACTIONS (1)
  - International normalised ratio fluctuation [Unknown]
